FAERS Safety Report 16649269 (Version 1)
Quarter: 2019Q3

REPORT INFORMATION
  Report Type: Spontaneous
  Country: US (occurrence: US)
  Receive Date: 20190730
  Receipt Date: 20190730
  Transmission Date: 20191004
  Serious: Yes (Other)
  Sender: FDA-Public Use
  Company Number: US-JNJFOC-20190730191

PATIENT
  Sex: Female

DRUGS (4)
  1. POMALYST [Suspect]
     Active Substance: POMALIDOMIDE
     Indication: PLASMA CELL MYELOMA
     Route: 048
     Dates: start: 201611
  2. DARZALEX [Suspect]
     Active Substance: DARATUMUMAB
     Indication: PRODUCT USED FOR UNKNOWN INDICATION
     Route: 065
  3. POMALYST [Suspect]
     Active Substance: POMALIDOMIDE
     Route: 048
     Dates: start: 201805
  4. POMALYST [Suspect]
     Active Substance: POMALIDOMIDE
     Dosage: PATIENT TOOK DOSE OF 2 MG FOR 21 DAYS IN A 28 DAYS CYCLE.
     Route: 048
     Dates: start: 201903

REACTIONS (2)
  - Cardiac failure [Unknown]
  - Oedema peripheral [Unknown]
